FAERS Safety Report 7164640-1 (Version None)
Quarter: 2010Q4

REPORT INFORMATION
  Report Type: 
  Country: None (occurrence: None)
  Receive Date: 20101215
  Receipt Date: 20101208
  Transmission Date: 20110411
  Serious: Yes (Hospitalization)
  Sender: FDA-Public Use
  Company Number: US-US-EMD SERONO, INC.-230990J10USA

PATIENT
  Sex: Female

DRUGS (7)
  1. REBIF [Suspect]
     Indication: MULTIPLE SCLEROSIS
     Route: 058
     Dates: start: 20080308
  2. LISINOPRIL [Concomitant]
     Indication: HYPERTENSION
  3. THEOPHYLLINE [Concomitant]
     Indication: ASTHMA
  4. ALBUTEROL [Concomitant]
     Indication: ASTHMA
  5. SPIRIVA [Concomitant]
     Indication: ASTHMA
  6. IBUPROFEN [Concomitant]
     Indication: PREMEDICATION
  7. UNSPECIFIED INJECTION [Concomitant]
     Indication: UPPER EXTREMITY MASS
     Dates: start: 20100101

REACTIONS (7)
  - BACK PAIN [None]
  - CERVICAL SPINAL STENOSIS [None]
  - GAIT DISTURBANCE [None]
  - MUSCLE SPASMS [None]
  - OSTEOPENIA [None]
  - PAIN [None]
  - RED BLOOD CELL COUNT DECREASED [None]
